FAERS Safety Report 17208430 (Version 1)
Quarter: 2019Q4

REPORT INFORMATION
  Report Type: Spontaneous
  Country: FR (occurrence: FR)
  Receive Date: 20191227
  Receipt Date: 20191227
  Transmission Date: 20200122
  Serious: Yes (Hospitalization)
  Sender: FDA-Public Use
  Company Number: FR-MYLANLABS-2019M1127381

PATIENT
  Age: 58 Year
  Sex: Female

DRUGS (3)
  1. RIFAMPICINE [Suspect]
     Active Substance: RIFAMPIN
     Indication: INFECTION
     Dosage: 300 MILLIGRAM, Q8H
     Route: 048
     Dates: start: 20190810, end: 20190827
  2. LEVOFLOXACIN. [Suspect]
     Active Substance: LEVOFLOXACIN
     Indication: INFECTION
     Dosage: 750 MILLIGRAM
     Route: 048
     Dates: start: 20190810, end: 20190826
  3. TAZOCILLINE [Suspect]
     Active Substance: PIPERACILLIN SODIUM\TAZOBACTAM SODIUM
     Indication: INFECTION
     Dosage: 12 GRAM
     Route: 042
     Dates: start: 20190810, end: 20190827

REACTIONS (2)
  - Bicytopenia [Recovering/Resolving]
  - Hepatocellular injury [Recovering/Resolving]

NARRATIVE: CASE EVENT DATE: 20190827
